FAERS Safety Report 7067539-4 (Version None)
Quarter: 2010Q4

REPORT INFORMATION
  Report Type: 
  Country: None (occurrence: None)
  Receive Date: 20101028
  Receipt Date: 20101014
  Transmission Date: 20110411
  Serious: Yes (Other)
  Sender: FDA-Public Use
  Company Number: FR-RANBAXY-2010RR-34716

PATIENT
  Age: 59 Year
  Sex: Female

DRUGS (1)
  1. DOXYPALU [Suspect]
     Indication: MALARIA PROPHYLAXIS
     Dosage: 100 MG, UNK

REACTIONS (1)
  - DRUG RASH WITH EOSINOPHILIA AND SYSTEMIC SYMPTOMS [None]
